FAERS Safety Report 9116133 (Version 2)
Quarter: 2013Q2

REPORT INFORMATION
  Report Type: Spontaneous
  Country: CO (occurrence: CO)
  Receive Date: 20130225
  Receipt Date: 20130621
  Transmission Date: 20140414
  Serious: Yes (Other)
  Sender: FDA-Public Use
  Company Number: CO-BIOMARINAP-CO-2013-100358

PATIENT
  Age: 15 Year
  Sex: Male
  Weight: 30 kg

DRUGS (1)
  1. NAGLAZYME [Suspect]
     Indication: MUCOPOLYSACCHARIDOSIS VI
     Dosage: 30 MG, QW
     Route: 041
     Dates: start: 20071214

REACTIONS (2)
  - Osteotomy [Recovered/Resolved]
  - Tenotomy [Recovered/Resolved]
